FAERS Safety Report 19967614 (Version 1)
Quarter: 2021Q4

REPORT INFORMATION
  Report Type: Spontaneous
  Country: US (occurrence: US)
  Receive Date: 20211018
  Receipt Date: 20211018
  Transmission Date: 20220303
  Serious: Yes (Disabling)
  Sender: FDA-Public Use
  Company Number: None

PATIENT
  Sex: Male
  Weight: 107.1 kg

DRUGS (22)
  1. CAPECITABINE [Suspect]
     Active Substance: CAPECITABINE
     Indication: Rectal cancer
     Dosage: ?          OTHER FREQUENCY:BID M-F WITH RAD;
     Route: 048
  2. ACETAMINOPHEN [Concomitant]
     Active Substance: ACETAMINOPHEN
  3. ALBUTEROL [Concomitant]
     Active Substance: ALBUTEROL
  4. NORVASC [Concomitant]
     Active Substance: AMLODIPINE BESYLATE
  5. ASPIRIN [Concomitant]
     Active Substance: ASPIRIN
  6. ATORVASTATIN [Concomitant]
     Active Substance: ATORVASTATIN
  7. COREG [Concomitant]
     Active Substance: CARVEDILOL
  8. COLLAGENASE SANTYL [Concomitant]
     Active Substance: COLLAGENASE CLOSTRIDIUM HISTOLYTICUM
  9. VITAMIN B12 [Concomitant]
     Active Substance: CYANOCOBALAMIN
  10. VOLTAREN [Concomitant]
     Active Substance: DICLOFENAC SODIUM
  11. DIPHENHYDRAMINE [Concomitant]
     Active Substance: DIPHENHYDRAMINE
  12. INSULIN NOS [Concomitant]
     Active Substance: INSULIN NOS
  13. FISH OIL [Concomitant]
     Active Substance: FISH OIL
  14. FOLIC ACID [Concomitant]
     Active Substance: FOLIC ACID
  15. LASIX [Concomitant]
     Active Substance: FUROSEMIDE
  16. GLIPIZIDE [Concomitant]
     Active Substance: GLIPIZIDE
  17. HYDROCORTISONE [Concomitant]
     Active Substance: HYDROCORTISONE
  18. NOVOLOG [Concomitant]
     Active Substance: INSULIN ASPART
  19. LOSARTAN [Concomitant]
     Active Substance: LOSARTAN
  20. NITROSTAT [Concomitant]
     Active Substance: NITROGLYCERIN
  21. OMEPRAZOLE [Concomitant]
     Active Substance: OMEPRAZOLE
  22. ZOLOFT [Concomitant]
     Active Substance: SERTRALINE HYDROCHLORIDE

REACTIONS (1)
  - Leg amputation [None]
